FAERS Safety Report 9905139 (Version 1)
Quarter: 2013Q2

REPORT INFORMATION
  Report Type: Spontaneous
  Country: US (occurrence: None)
  Receive Date: 20130627
  Receipt Date: 20130627
  Transmission Date: 20140414
  Serious: No
  Sender: FDA-Public Use
  Company Number: 1000044691

PATIENT
  Age: 74 Year
  Sex: Female

DRUGS (7)
  1. LINZESS [Suspect]
     Indication: IRRITABLE BOWEL SYNDROME
     Route: 048
     Dates: start: 20130419
  2. SYNTHROID (LEVOTHYROXINE SODIUM) (LEVOTHYROXINE SODIUM) [Concomitant]
  3. TOPROL (METOPROLOL SUCCINATE) (METTOPROLOL SUCCINATE) [Concomitant]
  4. LOSARTAN (LOSARTAN0 (LOSARTAN) [Concomitant]
  5. ZYRTEC (CETIRIZINE HYDROCHLORIDE) (CETIRIZINDE HYDROCHLORIDE) [Concomitant]
  6. CELEBREX (CELECOXIB) (CELECOXIB) [Concomitant]
  7. NEURONTIN (GABAPENTIN) (GABAPENTIN) [Concomitant]

REACTIONS (1)
  - Diarrhoea [None]
